FAERS Safety Report 5530617-2 (Version None)
Quarter: 2007Q4

REPORT INFORMATION
  Report Type: 
  Country: None (occurrence: None)
  Receive Date: 20071130
  Receipt Date: 20071120
  Transmission Date: 20080405
  Serious: Yes (Other)
  Sender: FDA-Public Use
  Company Number: A0692319A

PATIENT
  Sex: Male

DRUGS (1)
  1. REQUIP [Suspect]
     Indication: DRUG USE FOR UNKNOWN INDICATION

REACTIONS (15)
  - CONVULSION [None]
  - DEPRESSION [None]
  - DIZZINESS [None]
  - GINGIVAL PAIN [None]
  - HYPERHIDROSIS [None]
  - INJURY [None]
  - LOSS OF CONSCIOUSNESS [None]
  - MALAISE [None]
  - NAUSEA [None]
  - PAIN [None]
  - PALPITATIONS [None]
  - RESTLESS LEGS SYNDROME [None]
  - SINUS ARREST [None]
  - SYNCOPE [None]
  - VOMITING [None]
